FAERS Safety Report 6498372-X (Version None)
Quarter: 2009Q4

REPORT INFORMATION
  Report Type: 
  Country: None (occurrence: None)
  Receive Date: 20091125
  Receipt Date: 20090710
  Transmission Date: 20100525
  Serious: Yes (Other)
  Sender: FDA-Public Use
  Company Number: 2009BH010850

PATIENT
  Sex: Male

DRUGS (2)
  1. DIANEAL [Suspect]
     Indication: PERITONEAL DIALYSIS
     Dosage: 18 L ; EVERY DAY ; IP
     Route: 033
     Dates: end: 20090601
  2. DIANEAL [Suspect]
     Indication: PERITONEAL DIALYSIS
     Dosage: 3 L ; EVERY DAY ; IP
     Route: 033
     Dates: end: 20090601

REACTIONS (2)
  - PERITONEAL DIALYSIS COMPLICATION [None]
  - PERITONITIS BACTERIAL [None]
